FAERS Safety Report 6175693-1 (Version None)
Quarter: 2009Q2

REPORT INFORMATION
  Report Type: 
  Country: None (occurrence: None)
  Receive Date: 20090427
  Receipt Date: 20080707
  Transmission Date: 20091009
  Serious: Yes (Other)
  Sender: FDA-Public Use
  Company Number: TEST00208002985

PATIENT
  Age: 64 Year
  Sex: Male
  Weight: 117 kg

DRUGS (5)
  1. ANDROGEL [Suspect]
     Indication: BLOOD TESTOSTERONE DECREASED
     Dosage: 10 GRAM(S) QD TRANSCUTANEOUS DAILY DOSE: 10 GRAM (S)
     Route: 062
     Dates: start: 20080101, end: 20080601
  2. UNKNOWN BLOOD PRESSURE MEDICATION (UNKNOWN BLOOD PRESSURE MEDICATION) [Concomitant]
  3. PROSCAR [Concomitant]
  4. LIPITOR [Concomitant]
  5. UNKNOWN ALLERGY MEDICATION (UNKNOWN ALLERGY MEDICATION) [Concomitant]

REACTIONS (2)
  - PROSTATE CANCER [None]
  - URTICARIA [None]
